FAERS Safety Report 21828341 (Version 1)
Quarter: 2023Q1

REPORT INFORMATION
  Report Type: Spontaneous
  Country: DE (occurrence: DE)
  Receive Date: 20230106
  Receipt Date: 20230106
  Transmission Date: 20230418
  Serious: Yes (Life-Threatening, Hospitalization, Other)
  Sender: FDA-Public Use
  Company Number: None

PATIENT
  Age: 56 Year
  Sex: Male

DRUGS (6)
  1. XIPAMIDE [Suspect]
     Active Substance: XIPAMIDE
     Indication: Cardiac failure
     Dosage: 20 MG, 1 DAY, DURATION 11 MONTHS
     Route: 065
     Dates: start: 202108, end: 20220705
  2. SPIRONOLACTONE [Suspect]
     Active Substance: SPIRONOLACTONE
     Indication: Cardiac failure
     Dosage: 100 MG, 1 DAY, DURATION 11 MONTHS
     Route: 065
     Dates: start: 202108, end: 20220705
  3. JARDIANCE [Suspect]
     Active Substance: EMPAGLIFLOZIN
     Indication: Type 2 diabetes mellitus
     Dosage: 25 MG, 1 DAY, DURATION 11 MONTHS
     Route: 065
     Dates: start: 202108, end: 20220705
  4. JARDIANCE [Suspect]
     Active Substance: EMPAGLIFLOZIN
     Indication: Cardiac failure
  5. ENTRESTO [Suspect]
     Active Substance: SACUBITRIL\VALSARTAN
     Indication: Cardiac failure
     Dosage: 56.53 MG, 1 DAY, DURATION 11 MONTHS
     Route: 065
     Dates: start: 202108, end: 20220705
  6. METFORMIN [Concomitant]
     Active Substance: METFORMIN HYDROCHLORIDE
     Indication: Product used for unknown indication
     Dosage: 2X1000 MG

REACTIONS (3)
  - Ketoacidosis [Recovered/Resolved]
  - Gastroenteritis [Recovered/Resolved]
  - Acute kidney injury [Recovered/Resolved]

NARRATIVE: CASE EVENT DATE: 20220101
